FAERS Safety Report 9718867 (Version 1)
Quarter: 2013Q4

REPORT INFORMATION
  Report Type: Spontaneous
  Country: GB (occurrence: None)
  Receive Date: 20131126
  Receipt Date: 20131126
  Transmission Date: 20140711
  Serious: Yes (Congenital Anomaly, Other)
  Sender: FDA-Public Use
  Company Number: AUR-APL-2013-09754

PATIENT
  Sex: 0

DRUGS (3)
  1. METFORMIN [Suspect]
     Indication: INFERTILITY
     Dosage: 1500 MG (500 MG, 3 IN 1), TRANSPLACENTAL
     Route: 064
  2. CLOMID [Suspect]
     Indication: INFERTILITY
     Dosage: TRANSPLACENTAL
     Route: 064
  3. GAVISCON (GAVISCON/00237601/) [Concomitant]

REACTIONS (3)
  - Foetal exposure during pregnancy [None]
  - Exomphalos [None]
  - Congenital anomaly [None]
